FAERS Safety Report 18533699 (Version 1)
Quarter: 2020Q4

REPORT INFORMATION
  Report Type: Spontaneous
  Country: US (occurrence: US)
  Receive Date: 20201120
  Receipt Date: 20201120
  Transmission Date: 20210114
  Serious: No
  Sender: FDA-Public Use
  Company Number: None

PATIENT
  Age: 55 Year
  Sex: Female
  Weight: 72 kg

DRUGS (12)
  1. OMEPRAZOLE. [Concomitant]
     Active Substance: OMEPRAZOLE
  2. ZINC. [Concomitant]
     Active Substance: ZINC
  3. FLAXSEED [Concomitant]
     Active Substance: FLAX SEED
  4. LEVOTHYROXINE. [Concomitant]
     Active Substance: LEVOTHYROXINE
  5. CALCIUM [Concomitant]
     Active Substance: CALCIUM
  6. L-LYSINE [Concomitant]
     Active Substance: LYSINE
  7. BAMLANIVIMAB. [Suspect]
     Active Substance: BAMLANIVIMAB
     Dates: start: 20201119, end: 20201119
  8. MAGNESIUM [Concomitant]
     Active Substance: MAGNESIUM
  9. BIOTIN [Concomitant]
     Active Substance: BIOTIN
  10. ADVAIR HFA [Concomitant]
     Active Substance: FLUTICASONE PROPIONATE\SALMETEROL XINAFOATE
  11. SUPER C IMMUNE COMPLEX WITH ZINC [Concomitant]
  12. GENERIC 24 HOUR ALLERGY PILL [Concomitant]

REACTIONS (5)
  - Headache [None]
  - Dizziness [None]
  - Nausea [None]
  - Feeling hot [None]
  - Ear discomfort [None]

NARRATIVE: CASE EVENT DATE: 20201120
